FAERS Safety Report 18403360 (Version 1)
Quarter: 2020Q4

REPORT INFORMATION
  Report Type: Spontaneous
  Country: US (occurrence: US)
  Receive Date: 20201019
  Receipt Date: 20201019
  Transmission Date: 20210114
  Serious: Yes (Other)
  Sender: FDA-Public Use
  Company Number: US-BEH-2020123505

PATIENT
  Age: 10 Year

DRUGS (2)
  1. PRIVIGEN [Suspect]
     Active Substance: HUMAN IMMUNOGLOBULIN G
     Indication: CYTOMEGALOVIRUS VIRAEMIA
  2. PRIVIGEN [Suspect]
     Active Substance: HUMAN IMMUNOGLOBULIN G
     Indication: BK VIRUS INFECTION
     Dosage: 20 GRAM
     Route: 065
     Dates: start: 20200916

REACTIONS (4)
  - SARS-CoV-2 antibody test positive [Unknown]
  - Product use in unapproved indication [Unknown]
  - Immunisation [Unknown]
  - No adverse event [Unknown]

NARRATIVE: CASE EVENT DATE: 20200922
